FAERS Safety Report 10866125 (Version 1)
Quarter: 2015Q1

REPORT INFORMATION
  Report Type: Spontaneous
  Country: US (occurrence: None)
  Receive Date: 20150219
  Receipt Date: 20150219
  Transmission Date: 20150721
  Serious: No
  Sender: FDA-Public Use
  Company Number: None

PATIENT
  Age: 77 Year
  Sex: Female
  Weight: 57.15 kg

DRUGS (13)
  1. AVASTIN [Concomitant]
     Active Substance: BEVACIZUMAB
  2. FISH OIL [Concomitant]
     Active Substance: FISH OIL
  3. ACYCLOVIR. [Concomitant]
     Active Substance: ACYCLOVIR
  4. AZITHROMYCIN [Suspect]
     Active Substance: AZITHROMYCIN ANHYDROUS
     Indication: COUGH
     Dosage: 2 (THEN 1-1-1-1) 2 1ST DAY 1 FOR 4 DAYS MOUTH WITH FOOD
     Route: 048
     Dates: start: 20150129, end: 20150201
  5. ASPRIN [Concomitant]
     Active Substance: ASPIRIN
  6. OMEPRAZOLE. [Concomitant]
     Active Substance: OMEPRAZOLE
  7. SIMVASTIN [Concomitant]
     Active Substance: SIMVASTATIN
  8. FLUTICASONE [Concomitant]
     Active Substance: FLUTICASONE\FLUTICASONE PROPIONATE
  9. AZITHROMYCIN [Suspect]
     Active Substance: AZITHROMYCIN ANHYDROUS
     Indication: SINUS DISORDER
     Dosage: 2 (THEN 1-1-1-1) 2 1ST DAY 1 FOR 4 DAYS MOUTH WITH FOOD
     Route: 048
     Dates: start: 20150129, end: 20150201
  10. CO210 [Concomitant]
  11. ZYTERIC [Concomitant]
  12. VITAMIN B12 [Concomitant]
     Active Substance: CYANOCOBALAMIN
  13. PRESERVISION [Concomitant]

REACTIONS (3)
  - Oral discomfort [None]
  - Throat irritation [None]
  - Myalgia [None]

NARRATIVE: CASE EVENT DATE: 20150131
